FAERS Safety Report 6899295-4 (Version None)
Quarter: 2010Q3

REPORT INFORMATION
  Report Type: 
  Country: None (occurrence: None)
  Receive Date: 20100802
  Receipt Date: 20080505
  Transmission Date: 20110219
  Serious: Yes (Other)
  Sender: FDA-Public Use
  Company Number: US-PFIZER INC-2007104951

PATIENT
  Sex: Male
  Weight: 115.2 kg

DRUGS (19)
  1. LYRICA [Suspect]
     Indication: NEUROPATHY PERIPHERAL
     Dates: start: 20071201
  2. LIPITOR [Concomitant]
  3. TENORMIN [Concomitant]
  4. VASOTEC [Concomitant]
  5. CELEBREX [Concomitant]
  6. ACETYLSALICYLIC ACID SRT [Concomitant]
  7. SOMA [Concomitant]
  8. ZETIA [Concomitant]
  9. ZANTAC [Concomitant]
  10. ACIPHEX [Concomitant]
  11. CHLOR-TRIMETON [Concomitant]
  12. TRAMADOL HYDROCHLORIDE [Concomitant]
  13. TYLENOL [Concomitant]
  14. TEMAZEPAM [Concomitant]
  15. RHINOCORT [Concomitant]
  16. POLYETHYLENE GLYCOL [Concomitant]
  17. MULTIPLE VITAMINS [Concomitant]
  18. VITAMIN B COMPLEX CAP [Concomitant]
  19. VITAMIN B-12 [Concomitant]

REACTIONS (5)
  - DIZZINESS [None]
  - DYSKINESIA [None]
  - OEDEMA [None]
  - SOMNOLENCE [None]
  - WEIGHT INCREASED [None]
